FAERS Safety Report 16534273 (Version 2)
Quarter: 2020Q1

REPORT INFORMATION
  Report Type: Report from Study
  Country: UG (occurrence: UG)
  Receive Date: 20190705
  Receipt Date: 20200228
  Transmission Date: 20200409
  Serious: Yes (Congenital Anomaly, Other)
  Sender: FDA-Public Use
  Company Number: UG-VIIV HEALTHCARE LIMITED-UG2018GSK170600

PATIENT
  Age: 1 Day
  Sex: Male
  Weight: 10.5 kg

DRUGS (3)
  1. NEVIRAPINE SYRUP [Concomitant]
     Dosage: 1.5 ML, UNK
     Dates: start: 20180629
  2. DOLUTEGRAVIR [Suspect]
     Active Substance: DOLUTEGRAVIR
     Indication: HIV INFECTION
     Dosage: UNK
     Route: 064
     Dates: start: 20180530
  3. NEVIRAPINE SYRUP [Concomitant]
     Dosage: 1.5 UNK
     Dates: start: 20180617, end: 201809

REACTIONS (2)
  - Congenital umbilical hernia [Recovered/Resolved]
  - Birth mark [Not Recovered/Not Resolved]

NARRATIVE: CASE EVENT DATE: 20180629
